FAERS Safety Report 6905868-2 (Version None)
Quarter: 2010Q3

REPORT INFORMATION
  Report Type: 
  Country: None (occurrence: None)
  Receive Date: 20100804
  Receipt Date: 20100721
  Transmission Date: 20110219
  Serious: Yes (Other)
  Sender: FDA-Public Use
  Company Number: US-ELI_LILLY_AND_COMPANY-US201007006480

PATIENT
  Age: 65 Year
  Sex: Female

DRUGS (2)
  1. EFFIENT [Suspect]
     Dosage: 60 MG, UNKNOWN
     Dates: start: 20100713
  2. EFFIENT [Suspect]
     Dosage: 10 MG, UNKNOWN
     Dates: end: 20100720

REACTIONS (2)
  - INTESTINAL ISCHAEMIA [None]
  - SURGERY [None]
